FAERS Safety Report 13377906 (Version 1)
Quarter: 2017Q1

REPORT INFORMATION
  Report Type: Spontaneous
  Country: US (occurrence: US)
  Receive Date: 20170328
  Receipt Date: 20170328
  Transmission Date: 20170429
  Serious: Yes (Other)
  Sender: FDA-Public Use
  Company Number: US-SMITH AND NEPHEW, INC-2017SMT00171

PATIENT
  Sex: Male

DRUGS (5)
  1. VITAMIN A [Concomitant]
     Active Substance: VITAMIN A
  2. CALCIUM [Concomitant]
     Active Substance: CALCIUM
  3. COLLAGENASE SANTYL [Suspect]
     Active Substance: COLLAGENASE CLOSTRIDIUM HISTOLYTICUM
     Indication: WOUND
     Dosage: UNK
     Dates: start: 2017
  4. REGRANEX [Suspect]
     Active Substance: BECAPLERMIN
     Indication: WOUND
     Dosage: UNK
     Route: 061
     Dates: start: 201702, end: 2017
  5. UNSPECIFIED INSULIN PRODUCT [Concomitant]

REACTIONS (2)
  - Peripheral vascular disorder [Recovered/Resolved]
  - Drug ineffective [Not Recovered/Not Resolved]

NARRATIVE: CASE EVENT DATE: 2017
